FAERS Safety Report 8952670 (Version 1)
Quarter: 2012Q4

REPORT INFORMATION
  Report Type: 
  Country: US (occurrence: US)
  Receive Date: 20121205
  Receipt Date: 20121205
  Transmission Date: 20130627
  Serious: No
  Sender: FDA-Public Use
  Company Number: US-009507513-1212USA001636

PATIENT
  Sex: Female

DRUGS (2)
  1. EMEND FOR INJECTION [Suspect]
     Dosage: 150 mg/ once per chemo cycle
  2. DOXORUBICIN [Concomitant]

REACTIONS (1)
  - Infusion site irritation [Recovering/Resolving]
